FAERS Safety Report 6214244-X (Version None)
Quarter: 2009Q2

REPORT INFORMATION
  Report Type: 
  Country: None (occurrence: None)
  Receive Date: 20090604
  Receipt Date: 20090528
  Transmission Date: 20091009
  Serious: Yes (Death)
  Sender: FDA-Public Use
  Company Number: PHHY2009JP20939

PATIENT
  Age: 62 Year
  Sex: Male

DRUGS (1)
  1. CYCLOSPORINE [Suspect]
     Indication: LIVER TRANSPLANT
     Dosage: UNK
     Dates: start: 20060501

REACTIONS (7)
  - ABDOMINAL MASS [None]
  - DOUGLAS' POUCH MASS [None]
  - HEPATIC NEOPLASM MALIGNANT RECURRENT [None]
  - LESION EXCISION [None]
  - METASTASES TO BONE [None]
  - METASTASES TO LIVER [None]
  - METASTASES TO LUNG [None]
